FAERS Safety Report 4957237-2 (Version None)
Quarter: 2006Q1

REPORT INFORMATION
  Report Type: 
  Country: None (occurrence: None)
  Receive Date: 20060323
  Receipt Date: 20060307
  Transmission Date: 20060701
  Serious: Yes (Hospitalization)
  Sender: FDA-Public Use
  Company Number: US200603001518

PATIENT
  Age: 75 Year
  Sex: Female
  Weight: 90.7 kg

DRUGS (1)
  1. HUMULIN N [Suspect]
     Indication: DIABETES MELLITUS
     Dosage: 25 U, 2/D

REACTIONS (3)
  - MYOCARDIAL INFARCTION [None]
  - WEIGHT DECREASED [None]
  - WEIGHT INCREASED [None]
